FAERS Safety Report 11737889 (Version 1)
Quarter: 2015Q4

REPORT INFORMATION
  Report Type: Spontaneous
  Country: US (occurrence: US)
  Receive Date: 20151110
  Receipt Date: 20151110
  Transmission Date: 20160304
  Serious: No
  Sender: FDA-Public Use
  Company Number: US-ELI_LILLY_AND_COMPANY-US201201001694

PATIENT
  Sex: Female

DRUGS (2)
  1. FORTEO [Suspect]
     Active Substance: TERIPARATIDE
     Dosage: 20 UG, QD
     Route: 065
  2. FORTEO [Suspect]
     Active Substance: TERIPARATIDE
     Indication: OSTEOPOROSIS
     Dosage: 20 UG, QD
     Route: 065

REACTIONS (8)
  - Headache [Unknown]
  - Injection site pain [Unknown]
  - Underdose [Unknown]
  - Injection site haemorrhage [Unknown]
  - Anxiety [Recovered/Resolved]
  - Sleep disorder due to a general medical condition [Unknown]
  - Heart rate increased [Unknown]
  - Abdominal discomfort [Unknown]
